FAERS Safety Report 7464385-4 (Version None)
Quarter: 2011Q1

REPORT INFORMATION
  Report Type: 
  Country: None (occurrence: None)
  Receive Date: 20110302
  Receipt Date: 20101014
  Transmission Date: 20110831
  Serious: Yes (Hospitalization)
  Sender: FDA-Public Use
  Company Number: 163-21880-10091731

PATIENT
  Age: 70 Year
  Sex: Female

DRUGS (1)
  1. REVLIMID [Suspect]
     Indication: MULTIPLE MYELOMA
     Dosage: 25 MG, DAILY X 21 DAYS/28 DAY CYCLE, PO
     Route: 048
     Dates: start: 20100825

REACTIONS (3)
  - PYREXIA [None]
  - WHITE BLOOD CELL COUNT INCREASED [None]
  - NECK PAIN [None]
